FAERS Safety Report 6401484-X (Version None)
Quarter: 2009Q4

REPORT INFORMATION
  Report Type: 
  Country: None (occurrence: None)
  Receive Date: 20091015
  Receipt Date: 20091012
  Transmission Date: 20100525
  Serious: Yes (Death, Life-Threatening, Hospitalization, Disabling)
  Sender: FDA-Public Use
  Company Number: BR-BRISTOL-MYERS SQUIBB COMPANY-14751937

PATIENT
  Age: 69 Year
  Sex: Male
  Weight: 51 kg

DRUGS (4)
  1. CETUXIMAB [Suspect]
     Indication: NON-SMALL CELL LUNG CANCER
     Dosage: STRENGTH: 5MG/ML 2ND INF: 24AUG09
     Route: 042
     Dates: start: 20090810, end: 20090824
  2. CISPLATIN [Suspect]
     Indication: NON-SMALL CELL LUNG CANCER
     Dosage: DAY 1
     Route: 042
     Dates: start: 20090810
  3. VINORELBINE [Suspect]
     Indication: NON-SMALL CELL LUNG CANCER
     Dosage: DAYS 1 AND 8;DISCONTINUED ON 10AUG09.
     Route: 042
     Dates: start: 20090810
  4. DIABINESE [Concomitant]
     Route: 048
     Dates: start: 19850101

REACTIONS (3)
  - ASTHENIA [None]
  - DECREASED APPETITE [None]
  - DYSPNOEA [None]
